FAERS Safety Report 12280679 (Version 1)
Quarter: 2016Q2

REPORT INFORMATION
  Report Type: Spontaneous
  Country: US (occurrence: None)
  Receive Date: 20160418
  Receipt Date: 20160418
  Transmission Date: 20160815
  Serious: Yes (Hospitalization, Other)
  Sender: FDA-Public Use
  Company Number: None

PATIENT
  Age: 76 Year
  Sex: Female
  Weight: 70.31 kg

DRUGS (5)
  1. PLAVIX [Concomitant]
     Active Substance: CLOPIDOGREL BISULFATE
  2. PACEMAKER [Concomitant]
  3. PROLIA [Suspect]
     Active Substance: DENOSUMAB
     Indication: OSTEOPOROSIS
     Dosage: EVERY SIX MONTHS GIVEN INTO/UNDER THE SKIN
     Route: 058
     Dates: start: 20160404
  4. MULTI VITAMIN [Concomitant]
     Active Substance: VITAMINS
  5. ATIVAN [Concomitant]
     Active Substance: LORAZEPAM

REACTIONS (3)
  - Back pain [None]
  - Activities of daily living impaired [None]
  - Neck pain [None]

NARRATIVE: CASE EVENT DATE: 20160413
